FAERS Safety Report 18630037 (Version 1)
Quarter: 2020Q4

REPORT INFORMATION
  Report Type: Spontaneous
  Country: SI (occurrence: SI)
  Receive Date: 20201217
  Receipt Date: 20201217
  Transmission Date: 20210114
  Serious: Yes (Other)
  Sender: FDA-Public Use
  Company Number: SI-ASTRAZENECA-2020SF64604

PATIENT
  Age: 45 Year
  Sex: Male

DRUGS (7)
  1. GEFITINIB. [Suspect]
     Active Substance: GEFITINIB
     Indication: LUNG ADENOCARCINOMA
     Dosage: 4TH LINE OF THERAPY
     Route: 048
  2. PEMETREXED. [Suspect]
     Active Substance: PEMETREXED
     Indication: LUNG ADENOCARCINOMA
     Dosage: 6TH LINE OF THERAPY
     Route: 065
  3. ATEZOLIZUMAB. [Suspect]
     Active Substance: ATEZOLIZUMAB
     Indication: LUNG ADENOCARCINOMA
     Dosage: 6 TH LINE OF THERAPY
     Route: 041
  4. OSIMERTINIB. [Suspect]
     Active Substance: OSIMERTINIB
     Indication: LUNG ADENOCARCINOMA
     Dosage: 80.0MG UNKNOWN
     Route: 048
  5. TARCEVA [Suspect]
     Active Substance: ERLOTINIB HYDROCHLORIDE
     Indication: LUNG ADENOCARCINOMA
     Dosage: 150.0MG UNKNOWN
     Route: 048
  6. AVASTIN [Suspect]
     Active Substance: BEVACIZUMAB
     Indication: LUNG ADENOCARCINOMA
     Route: 065
  7. CRIZOTINIB [Suspect]
     Active Substance: CRIZOTINIB
     Indication: LUNG ADENOCARCINOMA
     Dosage: 5TH LINE OF THERAPY
     Route: 065

REACTIONS (21)
  - Dyspnoea [Unknown]
  - Rash [Unknown]
  - Thrombocytopenia [Unknown]
  - Spinal disorder [Unknown]
  - Liver disorder [Unknown]
  - Headache [Unknown]
  - Body temperature increased [Unknown]
  - Nausea [Unknown]
  - Off label use [Unknown]
  - Transaminases increased [Unknown]
  - Blood pressure increased [Unknown]
  - Neuropathy peripheral [Unknown]
  - Nervous system disorder [Unknown]
  - Myalgia [Unknown]
  - Diarrhoea [Unknown]
  - Vertigo [Unknown]
  - Anaemia [Unknown]
  - Proteinuria [Unknown]
  - Metastases to lung [Unknown]
  - Vomiting [Unknown]
  - Intentional product use issue [Unknown]
